FAERS Safety Report 8426162-7 (Version None)
Quarter: 2012Q2

REPORT INFORMATION
  Report Type: 
  Country: None (occurrence: None)
  Receive Date: 20120611
  Receipt Date: 20110912
  Transmission Date: 20120825
  Serious: No
  Sender: FDA-Public Use
  Company Number: US-MYLANLABS-2011S1017151

PATIENT
  Age: 75 Year
  Sex: Female

DRUGS (7)
  1. DOXEPIN HYDROCHLORIDE [Suspect]
     Indication: COLITIS
  2. PRILOSEC [Concomitant]
  3. ALL OTHER THERAPEUTIC PRODUCTS [Concomitant]
  4. DOXEPIN HYDROCHLORIDE [Suspect]
     Indication: CARDIAC DISORDER
  5. LANTUS [Suspect]
     Indication: TYPE 2 DIABETES MELLITUS
     Dates: start: 20060101
  6. LANTUS [Suspect]
     Indication: TYPE 2 DIABETES MELLITUS
     Route: 058
     Dates: start: 20060101
  7. NOVOLOG [Concomitant]
     Indication: TYPE 2 DIABETES MELLITUS

REACTIONS (4)
  - GASTRITIS [None]
  - DYSPHAGIA [None]
  - BLOOD GLUCOSE FLUCTUATION [None]
  - NAUSEA [None]
